FAERS Safety Report 19935902 (Version 1)
Quarter: 2021Q4

REPORT INFORMATION
  Report Type: Spontaneous
  Country: CA (occurrence: CA)
  Receive Date: 20211008
  Receipt Date: 20211008
  Transmission Date: 20220303
  Serious: Yes (Other)
  Sender: FDA-Public Use
  Company Number: CA-ALLERGAN-2134028US

PATIENT
  Sex: Male

DRUGS (11)
  1. ACTONEL [Suspect]
     Active Substance: RISEDRONATE SODIUM
     Indication: Osteoporosis
     Dosage: 35 MG, Q WEEK
     Route: 048
  2. ACETAMINOPHEN [Concomitant]
     Active Substance: ACETAMINOPHEN
  3. BENZYDAMINE [Concomitant]
     Active Substance: BENZYDAMINE
  4. CLOTRIMAZOLE [Concomitant]
     Active Substance: CLOTRIMAZOLE
  5. ELIQUIS [Concomitant]
     Active Substance: APIXABAN
  6. FLUOCINONIDE [Concomitant]
     Active Substance: FLUOCINONIDE
  7. HYDROMORPHONE [Concomitant]
     Active Substance: HYDROMORPHONE
  8. MAGNESIUM CITRATE [Concomitant]
     Active Substance: MAGNESIUM CITRATE
  9. RAPAFLO [Concomitant]
     Active Substance: SILODOSIN
  10. SENNOSIDES [Concomitant]
     Active Substance: SENNOSIDES
  11. SPIRONOLACTONE [Concomitant]
     Active Substance: SPIRONOLACTONE

REACTIONS (5)
  - Neoplasm malignant [Unknown]
  - Osteomyelitis [Unknown]
  - Oral surgery [Unknown]
  - Confusional state [Unknown]
  - Osteonecrosis of jaw [Unknown]
